FAERS Safety Report 5239642-2 (Version None)
Quarter: 2007Q1

REPORT INFORMATION
  Report Type: 
  Country: None (occurrence: None)
  Receive Date: 20070216
  Receipt Date: 20070208
  Transmission Date: 20070707
  Serious: Yes (Other)
  Sender: FDA-Public Use
  Company Number: GB-GLAXOSMITHKLINE-B0458494A

PATIENT
  Age: 59 Year
  Sex: Male
  Weight: 68 kg

DRUGS (2)
  1. AMOXICILLIN [Suspect]
     Dosage: 250MG THREE TIMES PER DAY
     Route: 048
     Dates: start: 20061215, end: 20061220
  2. CEPHALEXIN [Suspect]
     Dosage: 250MG THREE TIMES PER DAY
     Route: 048
     Dates: start: 20061220, end: 20061227

REACTIONS (2)
  - ANAEMIA HAEMOLYTIC AUTOIMMUNE [None]
  - HAEMOGLOBIN DECREASED [None]
